FAERS Safety Report 6106374-8 (Version None)
Quarter: 2009Q1

REPORT INFORMATION
  Report Type: 
  Country: None (occurrence: None)
  Receive Date: 20090306
  Receipt Date: 20090305
  Transmission Date: 20090719
  Serious: Yes (Hospitalization)
  Sender: FDA-Public Use
  Company Number: US-B.I. PHARMACEUTICALS,INC./RIDGEFIELD-2008-BP-14318BP

PATIENT
  Age: 85 Year
  Sex: Female

DRUGS (12)
  1. MOBIC [Suspect]
     Indication: OSTEOARTHRITIS
     Dates: start: 20061219, end: 20070321
  2. STEROID [Suspect]
     Dates: start: 20061101
  3. CELEBREX [Suspect]
     Indication: ARTHRALGIA
     Dosage: 200MG
     Dates: start: 20070901, end: 20070901
  4. ASPIRIN [Concomitant]
     Indication: THROMBOSIS PROPHYLAXIS
  5. NEXIUM [Concomitant]
  6. SYNTHROID [Concomitant]
     Indication: HYPOTHYROIDISM
     Dosage: 125MCG
  7. CALTRATE + D [Concomitant]
  8. LIPITOR [Concomitant]
     Indication: DYSLIPIDAEMIA
  9. LOTREL [Concomitant]
  10. VERELAN [Concomitant]
  11. MULTI-VITAMINS [Concomitant]
  12. LEVOTHYROXINE SODIUM [Concomitant]

REACTIONS (2)
  - ANAEMIA [None]
  - GASTRIC ULCER HAEMORRHAGE [None]
